FAERS Safety Report 26108611 (Version 1)
Quarter: 2025Q4

REPORT INFORMATION
  Report Type: Spontaneous
  Country: US (occurrence: None)
  Receive Date: 20251128
  Receipt Date: 20251128
  Transmission Date: 20260117
  Serious: Yes (Other)
  Sender: FDA-CTU
  Company Number: None

PATIENT
  Age: 73 Year
  Sex: Female
  Weight: 74.7 kg

DRUGS (2)
  1. ALYGLO [Suspect]
     Active Substance: HUMAN IMMUNOGLOBULIN G-STWK
     Indication: Myasthenia gravis
     Dosage: 120 G GRAM(S) OVER 2 DAYS Q28D
     Route: 042
  2. Alyglo 10% (20g/200ml) [Concomitant]
     Dates: start: 20251119, end: 20251119

REACTIONS (5)
  - Pruritus [None]
  - Urticaria [None]
  - Infusion related reaction [None]
  - Hypotension [None]
  - Nausea [None]

NARRATIVE: CASE EVENT DATE: 20251119
